FAERS Safety Report 11931128 (Version 3)
Quarter: 2016Q1

REPORT INFORMATION
  Report Type: Spontaneous
  Country: US (occurrence: US)
  Receive Date: 20160120
  Receipt Date: 20160323
  Transmission Date: 20160526
  Serious: Yes (Other)
  Sender: FDA-Public Use
  Company Number: US-BAYER-2016-008752

PATIENT
  Age: 18 Year
  Sex: Female
  Weight: 65.77 kg

DRUGS (4)
  1. ADDERALL [Concomitant]
     Active Substance: AMPHETAMINE ASPARTATE\AMPHETAMINE SULFATE\DEXTROAMPHETAMINE SACCHARATE\DEXTROAMPHETAMINE SULFATE
     Indication: ATTENTION DEFICIT/HYPERACTIVITY DISORDER
  2. CONCERTA [Concomitant]
     Active Substance: METHYLPHENIDATE HYDROCHLORIDE
  3. BACTRIM [Concomitant]
     Active Substance: SULFAMETHOXAZOLE\TRIMETHOPRIM
     Indication: ACNE
     Dosage: UNK
  4. SKYLA [Suspect]
     Active Substance: LEVONORGESTREL
     Indication: CONTRACEPTION
     Dosage: 14 MCG/24HR, CONT
     Route: 015
     Dates: start: 20140110, end: 20151223

REACTIONS (16)
  - Device breakage [Recovered/Resolved]
  - Embedded device [None]
  - Menorrhagia [None]
  - Fatigue [Not Recovered/Not Resolved]
  - Genital haemorrhage [None]
  - Subchorionic haemorrhage [None]
  - Hypomenorrhoea [None]
  - Nausea [Not Recovered/Not Resolved]
  - Amenorrhoea [Not Recovered/Not Resolved]
  - Drug ineffective [None]
  - Complication of device removal [Recovered/Resolved]
  - Influenza like illness [Not Recovered/Not Resolved]
  - Pregnancy with contraceptive device [Not Recovered/Not Resolved]
  - Progesterone decreased [None]
  - Device difficult to use [Recovered/Resolved]
  - Post procedural discomfort [Recovered/Resolved]

NARRATIVE: CASE EVENT DATE: 2014
